FAERS Safety Report 10573359 (Version 1)
Quarter: 2014Q4

REPORT INFORMATION
  Report Type: Spontaneous
  Country: US (occurrence: None)
  Receive Date: 20141030
  Receipt Date: 20141030
  Transmission Date: 20150529
  Serious: Yes (Other)
  Sender: FDA-Public Use
  Company Number: PHEH2013US024562

PATIENT
  Age: 60 Year
  Sex: Female

DRUGS (1)
  1. VIVELLE DOT [Suspect]
     Active Substance: ESTRADIOL
     Route: 062

REACTIONS (7)
  - Depression [None]
  - Hot flush [None]
  - Feeling abnormal [None]
  - Application site rash [None]
  - Balance disorder [None]
  - Insomnia [None]
  - Therapeutic response decreased [None]
